FAERS Safety Report 9524177 (Version 1)
Quarter: 2013Q1

REPORT INFORMATION
  Report Type: Spontaneous
  Country: US (occurrence: None)
  Receive Date: 20130313
  Receipt Date: 20130313
  Transmission Date: 20140127
  Serious: No
  Sender: FDA-Public Use
  Company Number: 1000039552

PATIENT
  Age: 56 Year
  Sex: Female

DRUGS (2)
  1. SAVELLA [Suspect]
     Indication: MIGRAINE
     Dosage: 12.5 (12.5 MG, 1 IN 1 D), ORAL
     Route: 048
     Dates: start: 20121013, end: 20121013
  2. FENTANYL (FENTANYL) (FENTANYL) [Concomitant]

REACTIONS (2)
  - Off label use [None]
  - Nausea [None]
